FAERS Safety Report 5268490-2 (Version None)
Quarter: 2007Q1

REPORT INFORMATION
  Report Type: 
  Country: None (occurrence: None)
  Receive Date: 20070319
  Receipt Date: 20070305
  Transmission Date: 20070707
  Serious: Yes (Hospitalization)
  Sender: FDA-Public Use
  Company Number: FR-PFIZER INC-2007017714

PATIENT
  Age: 69 Year
  Sex: Male

DRUGS (10)
  1. LYRICA [Suspect]
     Route: 048
  2. ZOPICLONE [Suspect]
     Route: 048
  3. TRINITRINE [Concomitant]
  4. FUROSEMIDE [Concomitant]
  5. PREDNISONE [Concomitant]
  6. BISOPROLOL FUMARATE [Concomitant]
  7. PERINDOPRIL ERBUMINE [Concomitant]
  8. INSULIN GLARGINE [Concomitant]
  9. DIGOXIN [Concomitant]
  10. REPAGLINIDE [Concomitant]
     Route: 048
     Dates: start: 20070201

REACTIONS (3)
  - FALL [None]
  - SOMNOLENCE [None]
  - VERTIGO [None]
